FAERS Safety Report 4732367-9 (Version None)
Quarter: 2005Q3

REPORT INFORMATION
  Report Type: 
  Country: None (occurrence: None)
  Receive Date: 20050721
  Receipt Date: 20050522
  Transmission Date: 20060218
  Serious: No
  Sender: FDA-Public Use
  Company Number: 2005SP000928

PATIENT
  Age: 71 Year
  Sex: Male
  Weight: 72.5755 kg

DRUGS (10)
  1. LUNESTA [Suspect]
     Indication: INSOMNIA
     Dosage: 3 MG;HS;ORAL
     Route: 048
     Dates: start: 20050521
  2. CLONAZEPAM [Concomitant]
  3. METFORMIN [Concomitant]
  4. FOLIC ACID [Concomitant]
  5. LEVOTHYROXINE [Concomitant]
  6. FELODIPINE [Concomitant]
  7. PRILOSEC [Concomitant]
  8. ZOCOR [Concomitant]
  9. LISINOPRIL [Concomitant]
  10. LORAZEPAM [Concomitant]

REACTIONS (2)
  - DRUG INEFFECTIVE [None]
  - INSOMNIA [None]
